FAERS Safety Report 22025805 (Version 1)
Quarter: 2023Q1

REPORT INFORMATION
  Report Type: Spontaneous
  Country: US (occurrence: None)
  Receive Date: 20230223
  Receipt Date: 20230223
  Transmission Date: 20230417
  Serious: No
  Sender: FDA-Public Use
  Company Number: US-ROCHE-3094436

PATIENT
  Sex: Male

DRUGS (11)
  1. XOLAIR [Suspect]
     Active Substance: OMALIZUMAB
     Indication: Asthma
     Route: 058
  2. XOLAIR [Suspect]
     Active Substance: OMALIZUMAB
  3. XOLAIR [Suspect]
     Active Substance: OMALIZUMAB
     Indication: Nasal polyps
  4. XOLAIR [Suspect]
     Active Substance: OMALIZUMAB
  5. AZELASTINE HYDROCHLORIDE [Concomitant]
     Active Substance: AZELASTINE HYDROCHLORIDE
     Indication: Rhinitis allergic
     Dosage: 137 MCG/SPRAY (2 SPRAY INTERNASALLY 2 TIMES PER DAY IN EACH NOSTRIL)
     Route: 045
  6. FASENRA [Concomitant]
     Active Substance: BENRALIZUMAB
     Dosage: 30MG/ML - ADMINISTER 1ML (30MG) SUBCUTANEOUSLY EVERY 8 WEEKS
     Route: 058
  7. CETIRIZINE HYDROCHLORIDE [Concomitant]
     Active Substance: CETIRIZINE HYDROCHLORIDE
     Indication: Rhinitis allergic
     Dosage: TAKE 1 TAB (5MG) BY MOUTH DAILY
     Route: 048
  8. ARNUITY ELLIPTA [Concomitant]
     Active Substance: FLUTICASONE FUROATE
     Indication: Asthma
     Dosage: 100MCG/ACT INHALATION AEROSOL POWDER BREATH ACTIVATED - A PUFF INHALED ORALLY DAILY
     Route: 048
     Dates: start: 20211029
  9. BEVESPI AEROSPHERE [Concomitant]
     Active Substance: FORMOTEROL FUMARATE\GLYCOPYRROLATE
     Indication: Asthma
     Dosage: 9-4.8 MCG/ACT INHALATION AEROSOL - 2 PUFFS INHALED ORALLY 2 TIMES PER DAY
     Route: 048
     Dates: start: 20170623
  10. LEVOTHYROXINE SODIUM [Concomitant]
     Active Substance: LEVOTHYROXINE SODIUM
     Dosage: TAKE 1 TABLET (25 MCG) BY MOUTH DAILY IN THE MORNING ON AN EMPTY STOMACH
     Route: 048
     Dates: start: 20211029
  11. PREDNISONE [Concomitant]
     Active Substance: PREDNISONE
     Indication: Asthma
     Dosage: TAKE 1 TABLET (20MG) BY MOUTH DAILY PRN
     Route: 048
     Dates: start: 20210309

REACTIONS (9)
  - Chronic sinusitis [Unknown]
  - Dyspnoea [Unknown]
  - Cough [Unknown]
  - Wheezing [Unknown]
  - Chronic obstructive pulmonary disease [Unknown]
  - Chest pain [Unknown]
  - Hyperlipidaemia [Unknown]
  - Anxiety disorder [Unknown]
  - Eosinophil count increased [Unknown]
